FAERS Safety Report 15918145 (Version 3)
Quarter: 2019Q2

REPORT INFORMATION
  Report Type: Report from Study
  Country: ZA (occurrence: ZA)
  Receive Date: 20190205
  Receipt Date: 20190415
  Transmission Date: 20190711
  Serious: Yes (Life-Threatening, Disabling)
  Sender: FDA-Public Use
  Company Number: ZA-SAKK-2019SA022037AA

PATIENT
  Age: 51 Year
  Sex: Male

DRUGS (8)
  1. TOUJEO [Suspect]
     Active Substance: INSULIN GLARGINE
     Dosage: 31 U, HS
     Dates: start: 20181019
  2. GLUCOPHAGE [Concomitant]
     Active Substance: METFORMIN HYDROCHLORIDE
     Dosage: 1000 MG, BID (BEFORE SUPPER AND BEFOE BREAKFAST)
     Dates: start: 20061026
  3. OPTISULIN (INSULIN GLARGINE) [Suspect]
     Active Substance: INSULIN GLARGINE
     Dosage: UNK
  4. INSULIN GLULISINE [Suspect]
     Active Substance: INSULIN GLULISINE
     Dosage: 5 U, TID AT BS (BEFORE SUPPER), BL (BEFORE LUNCH), BB (BEFORE BREAKFAST)
     Dates: start: 20181019
  5. VILDAGLIPTIN [Concomitant]
     Active Substance: VILDAGLIPTIN
     Dosage: 50 MG, BID (BEFORE SUPPER AND BEFORE BREAKFAST)
     Dates: start: 20181026
  6. INSULIN GLULISINE [Suspect]
     Active Substance: INSULIN GLULISINE
     Dosage: 7U-2U-5U, TID
     Dates: start: 20181019
  7. TOUJEO [Suspect]
     Active Substance: INSULIN GLARGINE
     Dosage: 40 U, HS
     Dates: start: 20181019
  8. INEGY [Concomitant]
     Active Substance: EZETIMIBE\SIMVASTATIN
     Dosage: 10 MG, HS
     Dates: start: 20190104

REACTIONS (8)
  - Nervousness [Recovered/Resolved]
  - Hypoglycaemia [Recovered/Resolved]
  - Blood glucose increased [Not Recovered/Not Resolved]
  - Hypoglycaemia [Not Recovered/Not Resolved]
  - Night sweats [Not Recovered/Not Resolved]
  - Glycosylated haemoglobin increased [Unknown]
  - Joint injury [Not Recovered/Not Resolved]
  - Limb injury [Not Recovered/Not Resolved]

NARRATIVE: CASE EVENT DATE: 20190123
